FAERS Safety Report 10498176 (Version 4)
Quarter: 2015Q2

REPORT INFORMATION
  Report Type: Report from Study
  Country: JP (occurrence: JP)
  Receive Date: 20141006
  Receipt Date: 20150415
  Transmission Date: 20150821
  Serious: Yes (Death, Hospitalization, Other)
  Sender: FDA-Public Use
  Company Number: JP-009507513-1410JPN002115

PATIENT
  Age: 72 Year
  Sex: Female
  Weight: 42 kg

DRUGS (18)
  1. REBETOL [Suspect]
     Active Substance: RIBAVIRIN
     Dosage: 400 MG, QD
     Route: 048
     Dates: start: 20140611, end: 20140708
  2. PEGINTRON [Suspect]
     Active Substance: PEGINTERFERON ALFA-2B
     Indication: CHRONIC HEPATITIS C
     Dosage: 1.5 MICROGRAM PER KILOGRAM, QW
     Route: 058
     Dates: start: 20140402, end: 20140910
  3. HYPEN [Concomitant]
     Active Substance: ETODOLAC
     Indication: PROPHYLAXIS
     Dosage: 400 MG, QD
     Route: 048
     Dates: start: 20140409
  4. NORVASC [Concomitant]
     Active Substance: AMLODIPINE BESYLATE
     Indication: HYPERTENSION
     Dosage: 5 MG, QD
     Route: 048
     Dates: start: 20140409
  5. REBETOL [Suspect]
     Active Substance: RIBAVIRIN
     Dosage: 600 MG, QD
     Route: 048
     Dates: start: 20140521, end: 20140610
  6. REBETOL [Suspect]
     Active Substance: RIBAVIRIN
     Dosage: 400 MG, QD
     Route: 048
     Dates: start: 20140806, end: 20140826
  7. REBETOL [Suspect]
     Active Substance: RIBAVIRIN
     Dosage: 400 MG, QD
     Route: 048
     Dates: start: 20140903, end: 20140916
  8. AZILVA [Concomitant]
     Active Substance: AZILSARTAN KAMEDOXOMIL
     Indication: HYPERTENSION
     Dosage: 40 MG, QD
     Route: 048
  9. RIZE [Concomitant]
     Active Substance: CLOTIAZEPAM
     Indication: INSOMNIA
     Dosage: 10 MG, QD
     Route: 048
  10. ROZEREM [Concomitant]
     Active Substance: RAMELTEON
     Indication: INSOMNIA
     Dosage: 8 MG, QD
     Route: 048
  11. REBETOL [Suspect]
     Active Substance: RIBAVIRIN
     Dosage: 200 MG, QD
     Route: 048
     Dates: start: 20140423, end: 20140513
  12. REBETOL [Suspect]
     Active Substance: RIBAVIRIN
     Dosage: 400 MG, QD
     Route: 048
     Dates: start: 20140514, end: 20140520
  13. REBETOL [Suspect]
     Active Substance: RIBAVIRIN
     Dosage: 200 MG, QD
     Route: 048
     Dates: start: 20140827, end: 20140902
  14. SIMEPREVIR [Suspect]
     Active Substance: SIMEPREVIR
     Indication: CHRONIC HEPATITIS C
     Dosage: 100 MG, QD
     Route: 048
     Dates: start: 20140402, end: 20140624
  15. LENDORMIN [Concomitant]
     Active Substance: BROTIZOLAM
     Indication: INSOMNIA
     Dosage: 0.25 MG, QD
     Route: 048
     Dates: start: 20140402
  16. REBETOL [Suspect]
     Active Substance: RIBAVIRIN
     Indication: CHRONIC HEPATITIS C
     Dosage: 600 MG, QD
     Route: 048
     Dates: start: 20140402, end: 20140422
  17. REBETOL [Suspect]
     Active Substance: RIBAVIRIN
     Dosage: 200 MG, QD
     Route: 048
     Dates: start: 20140709, end: 20140805
  18. CONIEL [Concomitant]
     Active Substance: BENIDIPINE HYDROCHLORIDE
     Indication: HYPERTENSION
     Dosage: 4 MG, QD
     Route: 048

REACTIONS (8)
  - Erythema [Recovered/Resolved]
  - Subarachnoid haemorrhage [Fatal]
  - Haemoglobin decreased [Not Recovered/Not Resolved]
  - Prurigo [Recovering/Resolving]
  - Constipation [Recovered/Resolved]
  - Depression [Not Recovered/Not Resolved]
  - Malaise [Recovering/Resolving]
  - Headache [Recovering/Resolving]

NARRATIVE: CASE EVENT DATE: 20140409
